FAERS Safety Report 18531822 (Version 1)
Quarter: 2020Q4

REPORT INFORMATION
  Report Type: Spontaneous
  Country: CN (occurrence: CN)
  Receive Date: 20201123
  Receipt Date: 20201123
  Transmission Date: 20210114
  Serious: Yes (Hospitalization, Other)
  Sender: FDA-Public Use
  Company Number: CN-ROCHE-2718395

PATIENT
  Age: 52 Year
  Sex: Female
  Weight: 50 kg

DRUGS (5)
  1. XELODA [Suspect]
     Active Substance: CAPECITABINE
     Indication: CERVIX DISORDER
     Route: 048
     Dates: start: 20201020, end: 20201103
  2. DOCETAXEL. [Suspect]
     Active Substance: DOCETAXEL
     Indication: CERVIX DISORDER
     Route: 041
     Dates: start: 20201021, end: 20201021
  3. SODIUM CHLORIDE IV [Concomitant]
     Active Substance: SODIUM CHLORIDE
     Route: 041
     Dates: start: 20201020, end: 20201020
  4. SODIUM CHLORIDE IV [Concomitant]
     Active Substance: SODIUM CHLORIDE
     Route: 041
     Dates: start: 20201021, end: 20201021
  5. NEDAPLATIN [Suspect]
     Active Substance: NEDAPLATIN
     Indication: CERVIX DISORDER
     Route: 041
     Dates: start: 20201020, end: 20201020

REACTIONS (4)
  - Intentional product use issue [Unknown]
  - Off label use [Unknown]
  - Myelosuppression [Unknown]
  - Renal failure [Unknown]

NARRATIVE: CASE EVENT DATE: 20201114
